FAERS Safety Report 25591845 (Version 1)
Quarter: 2025Q3

REPORT INFORMATION
  Report Type: Report from Study
  Country: US (occurrence: US)
  Receive Date: 20250722
  Receipt Date: 20250722
  Transmission Date: 20251020
  Serious: No
  Sender: VANDA PHARMACEUTICALS
  Company Number: US-VANDA PHARMACEUTICALS, INC-2025TASUS007563

PATIENT
  Sex: Female
  Weight: 79.365 kg

DRUGS (2)
  1. HETLIOZ LQ [Suspect]
     Active Substance: TASIMELTEON
     Indication: Non-24-hour sleep-wake disorder
     Dosage: 4 MILLILITER, EVERY NIGHT AT SAME TIME
     Route: 048
     Dates: start: 202207
  2. SPRAVATO [Suspect]
     Active Substance: ESKETAMINE
     Indication: Product used for unknown indication

REACTIONS (8)
  - Drug interaction [Unknown]
  - Hyperthyroidism [Unknown]
  - Metabolic disorder [Unknown]
  - Renal disorder [Recovered/Resolved]
  - Body height decreased [Unknown]
  - Weight decreased [Unknown]
  - Therapeutic product effect incomplete [Unknown]
  - Adverse drug reaction [Unknown]

NARRATIVE: CASE EVENT DATE: 20230101
